FAERS Safety Report 7455559-7 (Version None)
Quarter: 2011Q2

REPORT INFORMATION
  Report Type: 
  Country: None (occurrence: None)
  Receive Date: 20110503
  Receipt Date: 20110427
  Transmission Date: 20111010
  Serious: Yes (Hospitalization)
  Sender: FDA-Public Use
  Company Number: GB-ROCHE-751170

PATIENT
  Sex: Male
  Weight: 89 kg

DRUGS (28)
  1. ENOXAPARIN [Concomitant]
     Dates: start: 20101104
  2. CALCICHEW [Concomitant]
     Dates: start: 20080211
  3. ASPIRIN [Concomitant]
     Dates: start: 20101101
  4. SIMVASTATIN [Concomitant]
     Dates: start: 20071122
  5. GLICLAZIDE [Concomitant]
     Dates: start: 20080211, end: 20101229
  6. ALFACALCIDOL [Concomitant]
     Dates: start: 20110113
  7. AMITRIPTYLINE [Concomitant]
     Dosage: DRUG REPORTED AS : AMTRIPYLLINE.
     Dates: start: 20101226
  8. CALFINA [Concomitant]
     Dosage: TDD: 6 TABS
     Dates: start: 20081106
  9. PIRITON [Concomitant]
     Dates: start: 20101101
  10. OMEPRAZOLE [Concomitant]
     Dates: start: 20110113
  11. METHOXY POLYETHYLENE GLYCOL-EPOETIN BETA [Suspect]
     Dosage: DATE OF LAST DOSE PRIOR TO SAE: 28 MARCH 2011
     Route: 058
  12. PRILOSEC [Concomitant]
     Dates: start: 20110113
  13. ALFACALCIDOL [Concomitant]
     Dates: start: 20080724
  14. ALFACALCIDOL [Concomitant]
     Dosage: TDD: 6 TABLETS
     Dates: start: 20081106
  15. ALFACALCIDOL [Concomitant]
     Dates: start: 20110210
  16. DIPYRIDAMOLE [Concomitant]
     Dates: start: 20091101
  17. PRILOSEC [Concomitant]
     Dates: start: 20080211
  18. PRILOSEC [Concomitant]
     Dates: start: 20101129
  19. LANTHANUM CARBONATE [Concomitant]
     Dates: start: 20090826
  20. CALCICHEW [Concomitant]
     Dosage: TDD : X2
     Dates: start: 20081106
  21. AMIODARONE [Concomitant]
     Dates: start: 20101101
  22. METHOXY POLYETHYLENE GLYCOL-EPOETIN BETA [Suspect]
     Dosage: LAST DOSE PRIOR TO SAE: 30 NOV2010, FREQUENCY REPORTED AS MONTH, NOT GIVEN DURING EVENT.
     Route: 058
     Dates: start: 20100906
  23. RAMIPRIL [Concomitant]
     Dates: start: 20080724, end: 20101101
  24. DIPYRIDAMOLE [Concomitant]
  25. MIDODRINE HYDROCHLORIDE [Concomitant]
     Dates: start: 20110113
  26. CLOPIDOGREL [Concomitant]
     Dates: start: 20110113
  27. ASPIRIN [Concomitant]
     Dates: start: 20110113
  28. AMLODIPINE [Concomitant]
     Dates: end: 20101223

REACTIONS (4)
  - HYPOGLYCAEMIA [None]
  - FALL [None]
  - FLUID OVERLOAD [None]
  - PLEURAL EFFUSION [None]
